FAERS Safety Report 4904145-9 (Version None)
Quarter: 2006Q1

REPORT INFORMATION
  Report Type: 
  Country: None (occurrence: None)
  Receive Date: 20060208
  Receipt Date: 20050616
  Transmission Date: 20060701
  Serious: No
  Sender: FDA-Public Use
  Company Number: US-GLAXOSMITHKLINE-A0562994A

PATIENT
  Age: 44 Year
  Sex: Female

DRUGS (4)
  1. PAXIL [Suspect]
     Indication: DEPRESSION
     Dosage: 30MG PER DAY
     Route: 048
     Dates: start: 20050101
  2. ATENOLOL [Concomitant]
  3. METHOCARBAMOL [Concomitant]
  4. LORATADINE [Concomitant]

REACTIONS (1)
  - RESTLESS LEGS SYNDROME [None]
